FAERS Safety Report 9021996 (Version 1)
Quarter: 2013Q1

REPORT INFORMATION
  Report Type: Spontaneous
  Country: US (occurrence: US)
  Receive Date: 20130118
  Receipt Date: 20130118
  Transmission Date: 20140127
  Serious: Yes (Other)
  Sender: FDA-Public Use
  Company Number: US-PFIZER INC-2013020725

PATIENT
  Age: 65 Year
  Sex: Female

DRUGS (4)
  1. LIPITOR [Suspect]
     Dosage: 10 MG, 1X/DAY
  2. AMITRIPTYLINE [Concomitant]
     Dosage: 75 MG, NIGHTLY
  3. VITAMIN D [Concomitant]
     Dosage: 1000 IU, DAILY
  4. BABY ASPIRIN [Concomitant]
     Dosage: 3 DF, WEEKLY

REACTIONS (5)
  - Type 2 diabetes mellitus [Unknown]
  - Arthropathy [Unknown]
  - Post-traumatic stress disorder [Unknown]
  - Motion sickness [Unknown]
  - Vertigo [Unknown]
